FAERS Safety Report 8501800-9 (Version None)
Quarter: 2012Q3

REPORT INFORMATION
  Report Type: 
  Country: None (occurrence: None)
  Receive Date: 20120705
  Receipt Date: 20120705
  Transmission Date: 20120928
  Serious: Yes (Other)
  Sender: FDA-Public Use
  Company Number: None

PATIENT
  Sex: Female

DRUGS (4)
  1. LIPITOR [Concomitant]
  2. LISINOPRIL [Concomitant]
  3. AVISTA [Concomitant]
  4. PICATO [Suspect]
     Indication: PRECANCEROUS SKIN LESION
     Dosage: .015% 3 TIMES TOP
     Route: 061
     Dates: start: 20120521, end: 20120526

REACTIONS (5)
  - GOUT [None]
  - DISCOMFORT [None]
  - NERVE INJURY [None]
  - DYSGEUSIA [None]
  - MUSCULOSKELETAL DISORDER [None]
